FAERS Safety Report 6297377-1 (Version None)
Quarter: 2009Q3

REPORT INFORMATION
  Report Type: 
  Country: None (occurrence: None)
  Receive Date: 20090805
  Receipt Date: 20090606
  Transmission Date: 20100115
  Serious: Yes (Life-Threatening, Hospitalization)
  Sender: FDA-Public Use
  Company Number: NO-CELGENEUS-122-21880-09080001

PATIENT
  Sex: Female

DRUGS (10)
  1. REVLIMID [Suspect]
     Route: 048
     Dates: start: 20090421, end: 20090422
  2. TRIATEC [Concomitant]
     Indication: VENTRICULAR FAILURE
     Route: 048
  3. ACETAMINOPHEN [Concomitant]
     Indication: PAIN
     Route: 048
  4. DOLCONTIN [Concomitant]
     Indication: PAIN
     Route: 048
  5. DOLCONTIN [Concomitant]
     Route: 048
  6. PREDNISOLONE [Concomitant]
     Route: 048
     Dates: start: 20090421, end: 20090422
  7. FURIX [Concomitant]
     Indication: VENTRICULAR FAILURE
     Route: 048
  8. FURIX [Concomitant]
     Route: 048
  9. ALBYL-E [Concomitant]
     Route: 048
  10. METOPROLOL TARTRATE [Concomitant]
     Indication: VENTRICULAR FAILURE
     Route: 048

REACTIONS (1)
  - MYOCARDIAL INFARCTION [None]
